FAERS Safety Report 5386398-9 (Version None)
Quarter: 2007Q3

REPORT INFORMATION
  Report Type: 
  Country: None (occurrence: None)
  Receive Date: 20070713
  Receipt Date: 20070705
  Transmission Date: 20080115
  Serious: Yes (Other)
  Sender: FDA-Public Use
  Company Number: NL-BRISTOL-MYERS SQUIBB COMPANY-13841127

PATIENT
  Age: 36 Year
  Sex: Male

DRUGS (1)
  1. SPRYCEL [Suspect]
     Indication: CHRONIC MYELOID LEUKAEMIA
     Dosage: DASATINIB-70MG BID(FROM APRIL 2007),DURING SHORT PERIOD 140MG QD, SINCE JUNE 2007 100MG QD.
     Dates: start: 20070401, end: 20070601

REACTIONS (3)
  - HEMIPARESIS [None]
  - PNEUMONIA VIRAL [None]
  - POLYNEUROPATHY [None]
